FAERS Safety Report 20659688 (Version 1)
Quarter: 2022Q1

REPORT INFORMATION
  Report Type: Spontaneous
  Country: JP (occurrence: None)
  Receive Date: 20220331
  Receipt Date: 20220331
  Transmission Date: 20220423
  Serious: Yes (Other)
  Sender: FDA-Public Use
  Company Number: 2022A132189

PATIENT
  Age: 79 Year
  Sex: Female

DRUGS (1)
  1. QUETIAPINE FUMARATE [Suspect]
     Active Substance: QUETIAPINE FUMARATE
     Indication: Product used for unknown indication
     Dosage: 250 MG/DAY, UNKNOWN FREQ., AT BEDTIME250.0MG UNKNOWN
     Route: 048

REACTIONS (1)
  - Depressed level of consciousness [Unknown]
